FAERS Safety Report 13992146 (Version 1)
Quarter: 2017Q3

REPORT INFORMATION
  Report Type: Spontaneous
  Country: US (occurrence: US)
  Receive Date: 20170920
  Receipt Date: 20170920
  Transmission Date: 20171128
  Serious: Yes (Other)
  Sender: FDA-Public Use
  Company Number: US-JNJFOC-20170817530

PATIENT
  Age: 12 Year
  Sex: Male
  Weight: 68.95 kg

DRUGS (10)
  1. RISPERDAL CONSTA [Suspect]
     Active Substance: RISPERIDONE
     Indication: AFFECTIVE DISORDER
     Dosage: DOSE: 25 MG/2 ML INTRAMUSCULAR SYRINGE AND 37.5  MG/2ML
     Route: 030
     Dates: start: 201204, end: 201212
  2. RISPERDAL CONSTA [Suspect]
     Active Substance: RISPERIDONE
     Indication: AFFECTIVE DISORDER
     Route: 030
     Dates: end: 2014
  3. RISPERDAL CONSTA [Suspect]
     Active Substance: RISPERIDONE
     Indication: BIPOLAR DISORDER
     Dosage: DOSE: 25 MG/2 ML INTRAMUSCULAR SYRINGE AND 37.5  MG/2ML
     Route: 030
     Dates: start: 201204, end: 201212
  4. RISPERDAL [Suspect]
     Active Substance: RISPERIDONE
     Indication: PRODUCT USED FOR UNKNOWN INDICATION
     Route: 048
     Dates: end: 2014
  5. RISPERDAL CONSTA [Suspect]
     Active Substance: RISPERIDONE
     Indication: BIPOLAR DISORDER
     Route: 030
     Dates: end: 2013
  6. RISPERDAL CONSTA [Suspect]
     Active Substance: RISPERIDONE
     Indication: AFFECTIVE DISORDER
     Route: 030
     Dates: end: 2013
  7. RISPERDAL CONSTA [Suspect]
     Active Substance: RISPERIDONE
     Indication: BIPOLAR DISORDER
     Route: 030
     Dates: end: 2014
  8. RISPERDAL CONSTA [Suspect]
     Active Substance: RISPERIDONE
     Indication: ATTENTION DEFICIT/HYPERACTIVITY DISORDER
     Dosage: DOSE: 25 MG/2 ML INTRAMUSCULAR SYRINGE AND 37.5  MG/2ML
     Route: 030
     Dates: start: 201204, end: 201212
  9. RISPERDAL CONSTA [Suspect]
     Active Substance: RISPERIDONE
     Indication: ATTENTION DEFICIT/HYPERACTIVITY DISORDER
     Route: 030
     Dates: end: 2013
  10. RISPERDAL CONSTA [Suspect]
     Active Substance: RISPERIDONE
     Indication: ATTENTION DEFICIT/HYPERACTIVITY DISORDER
     Route: 030
     Dates: end: 2014

REACTIONS (2)
  - Gynaecomastia [Unknown]
  - Weight increased [Unknown]

NARRATIVE: CASE EVENT DATE: 201206
